FAERS Safety Report 8447442-5 (Version None)
Quarter: 2012Q2

REPORT INFORMATION
  Report Type: 
  Country: None (occurrence: None)
  Receive Date: 20120619
  Receipt Date: 20120607
  Transmission Date: 20120825
  Serious: Yes (Hospitalization, Other)
  Sender: FDA-Public Use
  Company Number: US-ELI_LILLY_AND_COMPANY-US201206003307

PATIENT
  Sex: Male

DRUGS (4)
  1. FORTEO [Suspect]
     Dosage: 20 UG, QD
  2. FORTEO [Suspect]
     Indication: OSTEOPOROSIS
     Dosage: 20 UG, QD
     Dates: start: 20090101
  3. ALPRAZOLAM [Concomitant]
     Dosage: UNK
  4. ADDERALL 5 [Concomitant]
     Dosage: UNK

REACTIONS (12)
  - HIP FRACTURE [None]
  - NAUSEA [None]
  - RIB FRACTURE [None]
  - INFLUENZA LIKE ILLNESS [None]
  - PAIN [None]
  - ASTHENIA [None]
  - MUSCLE SPASMS [None]
  - MALAISE [None]
  - MYALGIA [None]
  - HYPERHIDROSIS [None]
  - DIZZINESS [None]
  - FATIGUE [None]
